FAERS Safety Report 18923786 (Version 2)
Quarter: 2021Q1

REPORT INFORMATION
  Report Type: Spontaneous
  Country: AU (occurrence: AU)
  Receive Date: 20210222
  Receipt Date: 20210310
  Transmission Date: 20210420
  Serious: Yes (Other)
  Sender: FDA-Public Use
  Company Number: AU-PFIZER INC-2021156284

PATIENT
  Age: 66 Year
  Sex: Male

DRUGS (5)
  1. MONOFER [Suspect]
     Active Substance: IRON ISOMALTOSIDE 1000
     Dosage: UNK
     Dates: start: 20200521
  2. HYDROCORTISONE SODIUM SUCCINATE [Suspect]
     Active Substance: HYDROCORTISONE SODIUM SUCCINATE
     Dosage: 100 MG
  3. ZYRTEC [Suspect]
     Active Substance: CETIRIZINE HYDROCHLORIDE
     Dosage: 10 MG
  4. PANADOL [Suspect]
     Active Substance: ACETAMINOPHEN
  5. MONOFER [Suspect]
     Active Substance: IRON ISOMALTOSIDE 1000
     Dosage: UNK
     Dates: start: 20200803

REACTIONS (4)
  - Pallor [Recovered/Resolved]
  - Hypotension [Recovered/Resolved]
  - Loss of consciousness [Recovered/Resolved]
  - Hyperhidrosis [Recovered/Resolved]

NARRATIVE: CASE EVENT DATE: 202008
